FAERS Safety Report 11913702 (Version 1)
Quarter: 2016Q1

REPORT INFORMATION
  Report Type: Spontaneous
  Country: US (occurrence: US)
  Receive Date: 20160113
  Receipt Date: 20160113
  Transmission Date: 20160526
  Serious: No
  Sender: FDA-Public Use
  Company Number: US-PFIZER INC-2015370588

PATIENT
  Age: 57 Year
  Sex: Female
  Weight: 68.27 kg

DRUGS (22)
  1. LYRICA [Suspect]
     Active Substance: PREGABALIN
     Indication: PAIN
     Dosage: 150 MG, 2X/DAY (TAKE 1 CAPSULE)
     Route: 048
  2. GABAPENTIN. [Concomitant]
     Active Substance: GABAPENTIN
     Dosage: 600 MG, UNK
     Dates: start: 20151007
  3. ECOTRIN [Concomitant]
     Active Substance: ASPIRIN
     Dosage: UNK, AS NEEDED
     Route: 048
     Dates: start: 20150915
  4. ACETAMINOPHEN W/HYDROCODONE [Concomitant]
     Active Substance: ACETAMINOPHEN\HYDROCODONE
     Dosage: HYDROCODONE 10 MG-ACETAMINOPHEN 325 MG (TAKE 1 TABLET(S) EVERY 6 HOURS BY ORAL ROUTE AS NEEDED)
     Route: 048
     Dates: start: 20151009
  5. ROBAXIN [Concomitant]
     Active Substance: METHOCARBAMOL
     Dosage: TAKE 1 TABLET(S) 3 TIMES A DAY BY ORAL ROUTE AS NEEDED
     Route: 048
     Dates: start: 20150915
  6. TIZANIDINE. [Concomitant]
     Active Substance: TIZANIDINE
     Indication: MUSCLE SPASMS
     Dosage: UNK, 3X/DAY (1/2 TO 1 TAB PO UP TO TIDPRN)
     Route: 048
     Dates: start: 20151012
  7. FLUOXETINE [Concomitant]
     Active Substance: FLUOXETINE HYDROCHLORIDE
     Dosage: 20 MG, UNK
     Dates: start: 20150824
  8. HYDROCHLOROTHIAZIDE. [Concomitant]
     Active Substance: HYDROCHLOROTHIAZIDE
     Indication: HYPERTENSION
     Dosage: 25 MG, UNK
     Dates: start: 20150825
  9. MOBIC [Concomitant]
     Active Substance: MELOXICAM
     Dosage: 15 MG, AS NEEDED
     Route: 048
     Dates: start: 20150915
  10. LYRICA [Suspect]
     Active Substance: PREGABALIN
     Dosage: 150 MG, 2X/DAY
     Dates: start: 201506, end: 20151227
  11. HYDROCHLOROTHIAZIDE. [Concomitant]
     Active Substance: HYDROCHLOROTHIAZIDE
     Dosage: 25 MG, 1X/DAY
  12. LISINOPRIL. [Concomitant]
     Active Substance: LISINOPRIL
     Indication: HYPERTENSION
     Dosage: 10 MG, UNK
     Dates: start: 20151007
  13. MELOXICAM. [Concomitant]
     Active Substance: MELOXICAM
     Indication: ANTIINFLAMMATORY THERAPY
     Dosage: 150 MG, 1X/DAY
     Dates: start: 201506
  14. MOBIC [Concomitant]
     Active Substance: MELOXICAM
     Dosage: UNK
  15. TRAMADOL. [Concomitant]
     Active Substance: TRAMADOL
     Indication: PAIN
     Dosage: 50 MG, AS NEEDED (ONCE OR TWICE PER DAY)
     Route: 048
     Dates: start: 20151009
  16. ACETAMINOPHEN W/HYDROCODONE [Concomitant]
     Active Substance: ACETAMINOPHEN\HYDROCODONE
     Dosage: HYDROCODONE 7.5MG-ACETAMINOPHEN 325MG (TAKE 1 TABLET(S) EVERY 6 HOURS BY ORAL ROUTE AS NEEDED)
     Route: 048
     Dates: start: 20150915
  17. LISINOPRIL. [Concomitant]
     Active Substance: LISINOPRIL
     Dosage: 10 MG, 1X/DAY
     Dates: start: 2011
  18. MEDROL [Concomitant]
     Active Substance: METHYLPREDNISOLONE
     Dosage: 4 MG TABLETS IN A DOSE PACK
     Route: 048
     Dates: start: 20151009
  19. NAPROXEN SODIUM. [Concomitant]
     Active Substance: NAPROXEN SODIUM
     Dosage: 220 MG, AS NEEDED
     Route: 048
     Dates: start: 20150915
  20. TIZANIDINE. [Concomitant]
     Active Substance: TIZANIDINE
     Indication: PAIN
  21. BC ARTHRITIS STRENGTH [Concomitant]
     Dosage: UNK, AS NEEDED
     Route: 048
     Dates: start: 20150915
  22. METHOCARBAMOL. [Concomitant]
     Active Substance: METHOCARBAMOL
     Indication: MUSCLE RELAXANT THERAPY
     Dosage: 500 MG, 3X/DAY
     Dates: start: 201506

REACTIONS (3)
  - Agitation [Not Recovered/Not Resolved]
  - Drug withdrawal syndrome [Unknown]
  - Restlessness [Not Recovered/Not Resolved]

NARRATIVE: CASE EVENT DATE: 201512
